FAERS Safety Report 8085562-8 (Version None)
Quarter: 2012Q1

REPORT INFORMATION
  Report Type: 
  Country: None (occurrence: None)
  Receive Date: 20120128
  Receipt Date: 20110507
  Transmission Date: 20120608
  Serious: No
  Sender: FDA-Public Use
  Company Number: US-ABBOTT-11P-163-0714848-00

PATIENT
  Sex: Female

DRUGS (9)
  1. HUMIRA [Suspect]
     Indication: PSORIASIS
     Dosage: DAY ONE
     Route: 058
     Dates: start: 20110321
  2. CLONAZEPAM [Concomitant]
     Indication: ANXIETY
  3. RANEXA [Concomitant]
     Indication: ANGINA PECTORIS
     Dosage: 500 MG BY MOUTH TWO TIMES DAILY
  4. FUROSEMIDE [Concomitant]
     Indication: HYPERTENSION
     Dosage: 20 MG BY MOUTH DAILY
  5. CLONAZEPAM [Concomitant]
     Indication: INSOMNIA
     Dosage: 0.5 MG BY MOUTH AT BEDTIME
  6. ASPIRIN [Concomitant]
     Indication: PRODUCT USED FOR UNKNOWN INDICATION
     Dosage: 325 MG MOUTH DAILY
  7. LYRICA [Concomitant]
     Indication: FIBROMYALGIA
     Dosage: 50 MG BY MOUTH TWO TIMES DAILY
  8. ATENOLOL [Concomitant]
     Indication: HYPERTENSION
     Dosage: 50 MG BY MOUTH DAILY
  9. HUMIRA [Suspect]
     Dosage: 40 MG EVERY TWO WEEKS
     Dates: start: 20110314

REACTIONS (2)
  - INJECTION SITE PAIN [None]
  - INJECTION SITE HAEMATOMA [None]
